FAERS Safety Report 19007233 (Version 1)
Quarter: 2021Q1

REPORT INFORMATION
  Report Type: Spontaneous
  Country: BE (occurrence: BE)
  Receive Date: 20210315
  Receipt Date: 20210315
  Transmission Date: 20210420
  Serious: Yes (Hospitalization, Other)
  Sender: FDA-Public Use
  Company Number: BE-LUPIN PHARMACEUTICALS INC.-2021-03128

PATIENT
  Age: 45 Year
  Sex: Female

DRUGS (7)
  1. PREDNISONE. [Concomitant]
     Active Substance: PREDNISONE
     Indication: SJOGREN^S SYNDROME
     Dosage: 10 MILLIGRAM, QD
     Route: 065
  2. RITUXIMAB. [Concomitant]
     Active Substance: RITUXIMAB
     Indication: SJOGREN^S SYNDROME
     Dosage: 1 GRAM, 2 DOSES AT 2 WEEKS INTERVAL
     Route: 065
  3. METHYLPREDNISOLONE. [Concomitant]
     Active Substance: METHYLPREDNISOLONE
     Indication: SJOGREN^S SYNDROME
     Dosage: 500 MILLIGRAM, PULSE DOSES [EQUIVALENT TO 625 MG PREDNISOLONE] ON 3 CONSECUTIVE DAYS
     Route: 065
  4. METHYLPREDNISOLONE. [Concomitant]
     Active Substance: METHYLPREDNISOLONE
     Indication: CRYOGLOBULINAEMIA
     Dosage: 48 MILLIGRAM, QD, EQUIVALENT TO 60MG PREDNISOLONE
     Route: 065
  5. SULFAMETHOXAZOLE AND TRIMETHOPRIM [Suspect]
     Active Substance: SULFAMETHOXAZOLE\TRIMETHOPRIM
     Indication: INFECTION PROPHYLAXIS
     Dosage: UNK
     Route: 065
  6. PREDNISONE. [Concomitant]
     Active Substance: PREDNISONE
     Indication: CRYOGLOBULINAEMIA
  7. RITUXIMAB. [Concomitant]
     Active Substance: RITUXIMAB
     Indication: CRYOGLOBULINAEMIA

REACTIONS (4)
  - Tubulointerstitial nephritis [Recovering/Resolving]
  - Renal impairment [Recovering/Resolving]
  - Toxicity to various agents [Recovering/Resolving]
  - End stage renal disease [Recovering/Resolving]
